FAERS Safety Report 7288351-7 (Version None)
Quarter: 2011Q1

REPORT INFORMATION
  Report Type: 
  Country: None (occurrence: None)
  Receive Date: 20110211
  Receipt Date: 20110207
  Transmission Date: 20110831
  Serious: Yes (Hospitalization, Other)
  Sender: FDA-Public Use
  Company Number: US-PFIZER INC-2011027382

PATIENT
  Sex: Female
  Weight: 79.819 kg

DRUGS (3)
  1. NEURONTIN [Suspect]
     Indication: NERVE INJURY
     Dosage: 600MG CAPSULE 2 IN THE MORNING, 2 IN THE AFTERNOON, 1 AT NIGHT
     Route: 048
     Dates: start: 20080501
  2. PLAVIX [Concomitant]
     Dosage: UNK
  3. MORPHINE [Concomitant]
     Dosage: UNK

REACTIONS (5)
  - TRANSIENT ISCHAEMIC ATTACK [None]
  - IMPAIRED WORK ABILITY [None]
  - ARTERIAL OCCLUSIVE DISEASE [None]
  - MEMORY IMPAIRMENT [None]
  - CHRONIC OBSTRUCTIVE PULMONARY DISEASE [None]
